FAERS Safety Report 25565200 (Version 1)
Quarter: 2025Q3

REPORT INFORMATION
  Report Type: Spontaneous
  Country: JP (occurrence: JP)
  Receive Date: 20250716
  Receipt Date: 20250716
  Transmission Date: 20251020
  Serious: Yes (Hospitalization, Other)
  Sender: TAKEDA
  Company Number: JP-TAKEDA-2025TUS063301

PATIENT
  Age: 25 Year
  Sex: Female

DRUGS (7)
  1. LIALDA [Suspect]
     Active Substance: MESALAMINE
     Indication: Colitis ulcerative
  2. LIALDA [Suspect]
     Active Substance: MESALAMINE
  3. Clostridium butyricum [Concomitant]
  4. Berberine chloride hydrate [Concomitant]
  5. LEVOFLOXACIN HEMIHYDRATE [Concomitant]
     Active Substance: LEVOFLOXACIN
  6. SCOPOLAMINE [Concomitant]
     Active Substance: SCOPOLAMINE
  7. DOMPERIDONE [Concomitant]
     Active Substance: DOMPERIDONE

REACTIONS (3)
  - Decreased appetite [Unknown]
  - Abdominal pain [Unknown]
  - Colitis ulcerative [Recovering/Resolving]
